FAERS Safety Report 10080161 (Version 2)
Quarter: 2014Q2

REPORT INFORMATION
  Report Type: Report from Study
  Country: JP (occurrence: JP)
  Receive Date: 20140415
  Receipt Date: 20140623
  Transmission Date: 20141212
  Serious: Yes (Other)
  Sender: FDA-Public Use
  Company Number: JP-ABBVIE-14P-087-1226593-00

PATIENT
  Age: 85 Year
  Sex: Male
  Weight: 42 kg

DRUGS (10)
  1. LIPACREON GRANULES 300MG SACHET [Suspect]
     Indication: PANCREATIC INSUFFICIENCY
     Route: 048
     Dates: start: 20130419, end: 20130606
  2. LANSOPRAZOLE [Concomitant]
     Indication: DISEASE COMPLICATION
     Route: 048
  3. TERIPARATIDE ACETATE [Concomitant]
     Indication: DISEASE COMPLICATION
     Route: 050
  4. TERIPARATIDE ACETATE [Concomitant]
     Indication: OSTEOPOROSIS
  5. IFENPRODIL TARTRATE [Concomitant]
     Indication: DISEASE COMPLICATION
     Route: 048
  6. BENIDIPINE HYDROCHLORIDE [Concomitant]
     Indication: DISEASE COMPLICATION
     Route: 048
  7. CLOPIDOGREL SULFATE [Concomitant]
     Indication: DISEASE COMPLICATION
     Route: 048
  8. LOSARTAN POTASSIUM W/HYDROCHLOROTHIAZIDE [Concomitant]
     Indication: DISEASE COMPLICATION
     Route: 048
  9. DUTASTERIDE [Concomitant]
     Indication: DISEASE COMPLICATION
     Route: 048
  10. ESCITALOPRAM OXALATE [Concomitant]
     Indication: DISEASE COMPLICATION
     Route: 048

REACTIONS (2)
  - Weight increased [Recovered/Resolved]
  - Oedema peripheral [Recovered/Resolved]
